FAERS Safety Report 5147081-8 (Version None)
Quarter: 2006Q4

REPORT INFORMATION
  Report Type: 
  Country: None (occurrence: None)
  Receive Date: 20061102
  Receipt Date: 20061026
  Transmission Date: 20070319
  Serious: Yes (Death)
  Sender: FDA-Public Use
  Company Number: 231124

PATIENT
  Age: 84 Year
  Sex: Male

DRUGS (13)
  1. RANIBIZUMAB(RANIBIZUMAB) PWDR + SOLVENT, INJECTION SOLN [Suspect]
     Indication: MACULAR DEGENERATION
     Dosage: INTRAVITREAL
     Dates: start: 20060414
  2. ASPIRIN [Concomitant]
  3. DIGOXIN [Concomitant]
  4. HYDRALAZINE HCL [Concomitant]
  5. FLOVENT [Concomitant]
  6. ATROVENT [Concomitant]
  7. FORADIL [Concomitant]
  8. SINGULAIR [Concomitant]
  9. RANITDINE (RANITIDINE) [Concomitant]
  10. OCUVITE (ASCORBIC ACID, COPPER NOS, LUTEIN, SELENIUM NOS, VITAMIN A, V [Concomitant]
  11. VITAMIN E [Concomitant]
  12. VITAMIN D (CHOLECALCIFEROL) [Concomitant]
  13. ZOCOR [Concomitant]

REACTIONS (1)
  - DEATH [None]
